FAERS Safety Report 10342813 (Version 2)
Quarter: 2014Q4

REPORT INFORMATION
  Report Type: Spontaneous
  Country: US (occurrence: None)
  Receive Date: 20140723
  Receipt Date: 20141031
  Transmission Date: 20150528
  Serious: Yes (Other)
  Sender: FDA-Public Use
  Company Number: ADR-2014-01277

PATIENT
  Age: 54 Year
  Sex: Female

DRUGS (1)
  1. BACLOFEN INTRATHECAL [Suspect]
     Active Substance: BACLOFEN
     Indication: MUSCLE SPASTICITY

REACTIONS (7)
  - Underdose [None]
  - Irritability [None]
  - Device malfunction [None]
  - Drug withdrawal syndrome [None]
  - Pruritus [None]
  - Muscle twitching [None]
  - Dyskinesia [None]

NARRATIVE: CASE EVENT DATE: 20140714
